APPROVED DRUG PRODUCT: TIVICAY PD
Active Ingredient: DOLUTEGRAVIR SODIUM
Strength: EQ 5MG BASE
Dosage Form/Route: TABLET, FOR SUSPENSION;ORAL
Application: N213983 | Product #001
Applicant: VIIV HEALTHCARE CO
Approved: Jun 12, 2020 | RLD: Yes | RS: Yes | Type: RX

PATENTS:
Patent 9242986 | Expires: Dec 8, 2029
Patent 8129385 | Expires: Oct 5, 2027
Patent 8129385*PED | Expires: Apr 5, 2028
Patent 9242986*PED | Expires: Jun 8, 2030